FAERS Safety Report 22089456 (Version 1)
Quarter: 2023Q1

REPORT INFORMATION
  Report Type: Spontaneous
  Country: US (occurrence: US)
  Receive Date: 20230313
  Receipt Date: 20230313
  Transmission Date: 20230418
  Serious: No
  Sender: FDA-Public Use
  Company Number: US-ABBVIE-4336268

PATIENT
  Sex: Male

DRUGS (1)
  1. CREON [Suspect]
     Active Substance: PANCRELIPASE AMYLASE\PANCRELIPASE LIPASE\PANCRELIPASE PROTEASE
     Indication: Pancreatic failure
     Dosage: FREQUENCY: 2 TIMES A DAY WITH MEAL; 36,000 USP
     Route: 048

REACTIONS (3)
  - Thyroid disorder [Unknown]
  - Constipation [Unknown]
  - Autoimmune thyroiditis [Unknown]
